FAERS Safety Report 15836783 (Version 1)
Quarter: 2018Q4

REPORT INFORMATION
  Report Type: Spontaneous
  Country: US (occurrence: US)
  Receive Date: 20181220
  Receipt Date: 20181220
  Transmission Date: 20190205
  Serious: Yes (Death)
  Sender: FDA-Public Use
  Company Number: None

PATIENT
  Age: 22 Year
  Sex: Female
  Weight: 68.04 kg

DRUGS (1)
  1. OMNISCAN [Suspect]
     Active Substance: GADODIAMIDE
     Indication: BLOOD PROLACTIN INCREASED
     Dosage: ?          OTHER ROUTE:RIGHT ANTICUBITAL?
     Dates: start: 20180320

REACTIONS (1)
  - Adverse event [None]

NARRATIVE: CASE EVENT DATE: 20180320
